FAERS Safety Report 7842724-X (Version None)
Quarter: 2011Q4

REPORT INFORMATION
  Report Type: 
  Country: None (occurrence: None)
  Receive Date: 20111025
  Receipt Date: 20111019
  Transmission Date: 20120403
  Serious: Yes (Hospitalization, Other)
  Sender: FDA-Public Use
  Company Number: FR-PFIZER INC-2011251865

PATIENT
  Age: 70 Year
  Sex: Female

DRUGS (2)
  1. ZOMIG [Concomitant]
     Indication: MIGRAINE
     Dosage: UNK
  2. LYRICA [Suspect]
     Indication: NEURALGIA
     Dosage: 50 MG IN MORNING, 75 MG IN EVENING
     Route: 048
     Dates: start: 20030101, end: 20110101

REACTIONS (4)
  - PARAESTHESIA [None]
  - CHEST DISCOMFORT [None]
  - CLONUS [None]
  - TACHYPNOEA [None]
